FAERS Safety Report 6979517-1 (Version None)
Quarter: 2010Q3

REPORT INFORMATION
  Report Type: 
  Country: None (occurrence: None)
  Receive Date: 20100910
  Receipt Date: 20100910
  Transmission Date: 20110219
  Serious: Yes (Hospitalization, Other)
  Sender: FDA-Public Use
  Company Number: None

PATIENT
  Age: 77 Year
  Sex: Female
  Weight: 58.9676 kg

DRUGS (1)
  1. MACROBID [Suspect]
     Indication: URINARY TRACT INFECTION
     Dosage: 1 CAPSULE -100 MG- EVERY 12 HOURS PO
     Route: 048
     Dates: start: 20100413, end: 20100416

REACTIONS (4)
  - CARDIO-RESPIRATORY DISTRESS [None]
  - COGNITIVE DISORDER [None]
  - NASOPHARYNGITIS [None]
  - OXYGEN SATURATION DECREASED [None]
